FAERS Safety Report 5095953-5 (Version None)
Quarter: 2006Q3

REPORT INFORMATION
  Report Type: 
  Country: None (occurrence: None)
  Receive Date: 20060830
  Receipt Date: 20060821
  Transmission Date: 20061208
  Serious: Yes (Death)
  Sender: FDA-Public Use
  Company Number: 2006101899

PATIENT
  Age: 49 Year
  Sex: Female

DRUGS (3)
  1. LYRICA [Suspect]
     Indication: NEURALGIA
     Dates: start: 20060801
  2. ANTIPSYCHOTICS (ANTIPSYCHOTICS) [Concomitant]
  3. ANALGESICS (ANALGESICS) [Concomitant]

REACTIONS (1)
  - DEATH [None]
